FAERS Safety Report 7480550-4 (Version None)
Quarter: 2011Q2

REPORT INFORMATION
  Report Type: 
  Country: None (occurrence: None)
  Receive Date: 20110516
  Receipt Date: 20110505
  Transmission Date: 20111010
  Serious: No
  Sender: FDA-Public Use
  Company Number: US-BIOGENIDEC-2011BI017179

PATIENT
  Age: 34 Year
  Sex: Female

DRUGS (4)
  1. AVONEX [Suspect]
     Indication: MULTIPLE SCLEROSIS
     Route: 030
     Dates: start: 19990101, end: 20030101
  2. AVONEX [Suspect]
     Route: 030
     Dates: start: 20040101
  3. AVONEX [Suspect]
     Route: 030
     Dates: start: 20030101, end: 20040101
  4. AVONEX [Suspect]
     Route: 030
     Dates: start: 20040101, end: 20040101

REACTIONS (5)
  - PAIN [None]
  - FEELING ABNORMAL [None]
  - INFLUENZA LIKE ILLNESS [None]
  - PAIN OF SKIN [None]
  - UNDERDOSE [None]
